FAERS Safety Report 9007248 (Version 2)
Quarter: 2013Q1

REPORT INFORMATION
  Report Type: Spontaneous
  Country: US (occurrence: US)
  Receive Date: 20130110
  Receipt Date: 20130117
  Transmission Date: 20140127
  Serious: Yes (Hospitalization, Other)
  Sender: FDA-Public Use
  Company Number: US-B.I. PHARMACEUTICALS,INC./RIDGEFIELD-2013-BI-00079BP

PATIENT
  Sex: Female
  Weight: 67 kg

DRUGS (1)
  1. PRADAXA [Suspect]
     Indication: ATRIAL FIBRILLATION
     Dosage: 300 MG
     Route: 048
     Dates: start: 2010

REACTIONS (5)
  - Pneumonia [Recovered/Resolved]
  - Pancreatitis [Recovered/Resolved]
  - Cholecystitis [Recovered/Resolved]
  - Dyspepsia [Recovered/Resolved]
  - Pancreatitis [Unknown]
